FAERS Safety Report 4519982-2 (Version None)
Quarter: 2004Q4

REPORT INFORMATION
  Report Type: 
  Country: None (occurrence: None)
  Receive Date: 20041207
  Receipt Date: 20041125
  Transmission Date: 20050328
  Serious: Yes (Other)
  Sender: FDA-Public Use
  Company Number: AU-NOVOPROD-240733

PATIENT

DRUGS (2)
  1. INSULIN DETEMIR [Suspect]
     Indication: DIABETES MELLITUS INSULIN-DEPENDENT
     Dosage: 36 U, QD
     Route: 058
     Dates: start: 20040827
  2. NOVORAPID [Suspect]
     Indication: DIABETES MELLITUS INSULIN-DEPENDENT
     Dosage: 58 IU, QD
     Route: 058
     Dates: start: 20040827

REACTIONS (1)
  - VITREOUS FLOATERS [None]
